FAERS Safety Report 10084923 (Version 2)
Quarter: 2014Q2

REPORT INFORMATION
  Report Type: Spontaneous
  Country: MX (occurrence: MX)
  Receive Date: 20140417
  Receipt Date: 20140605
  Transmission Date: 20141212
  Serious: Yes (Hospitalization)
  Sender: FDA-Public Use
  Company Number: PHHY2014MX042257

PATIENT
  Age: 16 Year
  Sex: Male

DRUGS (4)
  1. PREDNISONE [Suspect]
     Indication: ACUTE LYMPHOCYTIC LEUKAEMIA
  2. L-ASPARAGINASE [Suspect]
     Indication: ACUTE LYMPHOCYTIC LEUKAEMIA
  3. MITOXANTRONE [Concomitant]
     Indication: ACUTE LYMPHOCYTIC LEUKAEMIA
  4. VINCRISTINE [Concomitant]
     Indication: ACUTE LYMPHOCYTIC LEUKAEMIA

REACTIONS (14)
  - Diabetic ketoacidosis [Recovered/Resolved]
  - Hyperglycaemia [Recovered/Resolved]
  - Acidosis [Recovered/Resolved]
  - Ketonuria [Recovered/Resolved]
  - Blood bicarbonate decreased [Recovered/Resolved]
  - Hyperamylasaemia [Recovered/Resolved]
  - Hyperlipasaemia [Recovered/Resolved]
  - Pancreatitis acute [Recovered/Resolved]
  - Decreased appetite [Recovered/Resolved]
  - Vomiting [Recovered/Resolved]
  - Nausea [Recovered/Resolved]
  - Blood urea increased [Recovered/Resolved]
  - Blood osmolarity increased [Recovered/Resolved]
  - Lipase increased [Recovered/Resolved]
